FAERS Safety Report 5027052-2 (Version None)
Quarter: 2006Q2

REPORT INFORMATION
  Report Type: 
  Country: None (occurrence: None)
  Receive Date: 20060612
  Receipt Date: 20060530
  Transmission Date: 20061013
  Serious: Yes (Other)
  Sender: FDA-Public Use
  Company Number: HQWYE822804AUG04

PATIENT
  Age: 67 Year
  Sex: Female
  Weight: 61.29 kg

DRUGS (4)
  1. PREMPRO [Suspect]
  2. CYCRIN [Suspect]
  3. PREMARIN [Suspect]
  4. PROVERA [Suspect]

REACTIONS (9)
  - BASAL CELL CARCINOMA [None]
  - BREAST CANCER METASTATIC [None]
  - BREAST CYST [None]
  - BREAST FIBROSIS [None]
  - NEOPLASM RECURRENCE [None]
  - OESTROGEN RECEPTOR ASSAY POSITIVE [None]
  - PROGESTERONE RECEPTOR ASSAY POSITIVE [None]
  - SCAR [None]
  - SQUAMOUS CELL CARCINOMA [None]
